FAERS Safety Report 10475222 (Version 1)
Quarter: 2014Q3

REPORT INFORMATION
  Report Type: Report from Study
  Country: US (occurrence: US)
  Receive Date: 20140925
  Receipt Date: 20140925
  Transmission Date: 20150326
  Serious: Yes (Other)
  Sender: FDA-Public Use
  Company Number: US-ROCHE-1465662

PATIENT
  Age: 9 Year
  Sex: Male
  Weight: 28.1 kg

DRUGS (13)
  1. NUTROPIN AQ [Suspect]
     Active Substance: SOMATROPIN
     Indication: GROWTH HORMONE DEFICIENCY
     Dosage: 6 X WEEK
     Route: 058
     Dates: start: 20120601, end: 20120906
  2. NUTROPIN AQ [Suspect]
     Active Substance: SOMATROPIN
     Dosage: 6 X WEEK
     Route: 058
     Dates: start: 20130307
  3. TENEX [Concomitant]
     Active Substance: GUANFACINE HYDROCHLORIDE
  4. NUTROPIN AQ [Suspect]
     Active Substance: SOMATROPIN
     Route: 058
  5. VYVANSE [Concomitant]
     Active Substance: LISDEXAMFETAMINE DIMESYLATE
  6. SINGULAIR [Concomitant]
     Active Substance: MONTELUKAST SODIUM
  7. L DOPA [Concomitant]
     Active Substance: LEVODOPA
     Route: 065
  8. TRAZODONE [Concomitant]
     Active Substance: TRAZODONE HYDROCHLORIDE
  9. NUTROPIN AQ [Suspect]
     Active Substance: SOMATROPIN
     Dosage: 6 X WEEK
     Route: 058
     Dates: start: 20120906, end: 20130307
  10. ZYRTEC [Concomitant]
     Active Substance: CETIRIZINE HYDROCHLORIDE
  11. ADVAIR HFA [Concomitant]
     Active Substance: FLUTICASONE PROPIONATE\SALMETEROL XINAFOATE
     Route: 065
  12. VENTOLIN [Concomitant]
     Active Substance: ALBUTEROL SULFATE
  13. GLUCAGON. [Concomitant]
     Active Substance: GLUCAGON
     Route: 065

REACTIONS (10)
  - Dizziness [Unknown]
  - Weight increased [Unknown]
  - Abdominal pain [Unknown]
  - Asperger^s disorder [Unknown]
  - Headache [Recovered/Resolved]
  - Abnormal behaviour [Recovering/Resolving]
  - Upper respiratory tract infection [Unknown]
  - Constipation [Unknown]
  - Photosensitivity reaction [Recovered/Resolved]
  - Headache [Unknown]

NARRATIVE: CASE EVENT DATE: 20120601
